FAERS Safety Report 17886468 (Version 1)
Quarter: 2020Q2

REPORT INFORMATION
  Report Type: Spontaneous
  Country: US (occurrence: US)
  Receive Date: 20200611
  Receipt Date: 20200611
  Transmission Date: 20200714
  Serious: No
  Sender: FDA-Public Use
  Company Number: US-GUERBET-US-20200073

PATIENT
  Age: 2 Day
  Sex: Male

DRUGS (1)
  1. OPTIRAY [Suspect]
     Active Substance: IOVERSOL
     Indication: EXPOSURE DURING PREGNANCY
     Route: 042

REACTIONS (5)
  - Vomiting [Recovered/Resolved]
  - Abdominal distension [Recovered/Resolved]
  - Exposure during pregnancy [Recovered/Resolved]
  - Hyperbilirubinaemia [Recovered/Resolved]
  - Gastrooesophageal reflux disease [Recovered/Resolved]
